FAERS Safety Report 11517151 (Version 1)
Quarter: 2015Q3

REPORT INFORMATION
  Report Type: Spontaneous
  Country: US (occurrence: None)
  Receive Date: 20150916
  Receipt Date: 20150916
  Transmission Date: 20151125
  Serious: Yes (Hospitalization)
  Sender: FDA-Public Use
  Company Number: None

PATIENT
  Age: 2 Year
  Sex: Male
  Weight: 14.6 kg

DRUGS (2)
  1. VINCRISTINE SULFATE. [Suspect]
     Active Substance: VINCRISTINE SULFATE
     Dates: end: 20150810
  2. ONCASPAR [Suspect]
     Active Substance: PEGASPARGASE
     Dosage: 2200 UNIT
     Dates: end: 20150723

REACTIONS (2)
  - Infusion related reaction [None]
  - Urticaria [None]

NARRATIVE: CASE EVENT DATE: 20150911
